FAERS Safety Report 11176505 (Version 1)
Quarter: 2015Q2

REPORT INFORMATION
  Report Type: Spontaneous
  Country: GB (occurrence: GB)
  Receive Date: 20150610
  Receipt Date: 20150610
  Transmission Date: 20150821
  Serious: Yes (Other)
  Sender: FDA-Public Use
  Company Number: GB-TEVA-567439ACC

PATIENT
  Age: 72 Year
  Sex: Male
  Weight: 66 kg

DRUGS (15)
  1. CARBOCISTEINE [Concomitant]
     Active Substance: CARBOCYSTEINE
  2. SALBUTAMOL [Concomitant]
     Active Substance: ALBUTEROL
  3. SPIRONOLACTONE. [Concomitant]
     Active Substance: SPIRONOLACTONE
  4. TIOTROPIUM [Concomitant]
     Active Substance: TIOTROPIUM
  5. AZITHROMYCIN [Suspect]
     Active Substance: AZITHROMYCIN ANHYDROUS
     Indication: CHRONIC OBSTRUCTIVE PULMONARY DISEASE
     Dosage: PATIENT ONLY TOOK ONE DOSE.
     Route: 048
     Dates: start: 20150518, end: 20150518
  6. RISEDRONATE [Concomitant]
     Active Substance: RISEDRONATE SODIUM
  7. ADCAL-D3 [Concomitant]
     Active Substance: CALCIUM CARBONATE\CHOLECALCIFEROL
  8. ASPIRIN. [Concomitant]
     Active Substance: ASPIRIN
  9. PARACETAMOL [Concomitant]
     Active Substance: ACETAMINOPHEN
  10. ZOPICLONE [Concomitant]
     Active Substance: ZOPICLONE
  11. BETAHISTINE [Concomitant]
     Active Substance: BETAHISTINE
  12. FEXOFENADINE [Concomitant]
     Active Substance: FEXOFENADINE\FEXOFENADINE HYDROCHLORIDE
  13. ORAMORPH SR SUSTAINED RELEASE [Concomitant]
     Active Substance: MORPHINE SULFATE
  14. SIMVADOR [Concomitant]
     Active Substance: SIMVASTATIN
  15. SYMBICORT [Concomitant]
     Active Substance: BUDESONIDE\FORMOTEROL FUMARATE DIHYDRATE

REACTIONS (4)
  - Urticaria [Recovering/Resolving]
  - Peripheral swelling [Recovering/Resolving]
  - Skin exfoliation [Recovering/Resolving]
  - Dyspnoea [Recovering/Resolving]

NARRATIVE: CASE EVENT DATE: 20150518
